FAERS Safety Report 14381815 (Version 2)
Quarter: 2018Q1

REPORT INFORMATION
  Report Type: Spontaneous
  Country: GB (occurrence: GB)
  Receive Date: 20180112
  Receipt Date: 20180131
  Transmission Date: 20180509
  Serious: Yes (Other)
  Sender: FDA-Public Use
  Company Number: GB-SA-2018SA007157

PATIENT

DRUGS (2)
  1. LEMTRADA [Suspect]
     Active Substance: ALEMTUZUMAB
     Indication: MULTIPLE SCLEROSIS
     Route: 041
  2. LEMTRADA [Suspect]
     Active Substance: ALEMTUZUMAB
     Indication: MULTIPLE SCLEROSIS
     Route: 041

REACTIONS (5)
  - Therapeutic response decreased [Unknown]
  - Lymphocyte count decreased [Recovering/Resolving]
  - Multiple sclerosis relapse [Unknown]
  - Condition aggravated [Unknown]
  - Nuclear magnetic resonance imaging abnormal [Unknown]
